FAERS Safety Report 6158777-3 (Version None)
Quarter: 2009Q2

REPORT INFORMATION
  Report Type: 
  Country: None (occurrence: None)
  Receive Date: 20090417
  Receipt Date: 20090409
  Transmission Date: 20091009
  Serious: Yes (Death)
  Sender: FDA-Public Use
  Company Number: B0570235A

PATIENT
  Age: 86 Year
  Sex: Male

DRUGS (1)
  1. ARIXTRA [Suspect]
     Indication: THROMBOSIS PROPHYLAXIS

REACTIONS (2)
  - DEATH [None]
  - HAEMATOMA [None]
